FAERS Safety Report 4993940-6 (Version None)
Quarter: 2006Q2

REPORT INFORMATION
  Report Type: 
  Country: None (occurrence: None)
  Receive Date: 20060503
  Receipt Date: 20060427
  Transmission Date: 20061013
  Serious: Yes (Death, Hospitalization, Other)
  Sender: FDA-Public Use
  Company Number: 2006-00291

PATIENT
  Sex: Female

DRUGS (1)
  1. VELCADE [Suspect]
     Indication: MULTIPLE MYELOMA
     Dates: start: 20060101

REACTIONS (6)
  - CARDIAC DISORDER [None]
  - CEREBRAL HAEMORRHAGE [None]
  - CONTUSION [None]
  - EPISTAXIS [None]
  - HAEMATOMA [None]
  - THROMBOCYTOPENIA [None]
